FAERS Safety Report 23795211 (Version 1)
Quarter: 2024Q2

REPORT INFORMATION
  Report Type: Spontaneous
  Country: US (occurrence: US)
  Receive Date: 20240429
  Receipt Date: 20240429
  Transmission Date: 20240716
  Serious: Yes (Hospitalization, Other)
  Sender: FDA-Public Use
  Company Number: US-PFM-2024-02596

PATIENT
  Age: 66 Day
  Sex: Male

DRUGS (4)
  1. PROPRANOLOL [Suspect]
     Active Substance: PROPRANOLOL HYDROCHLORIDE
     Indication: Myocardial ischaemia
     Dosage: UNK
     Route: 065
  2. PROPRANOLOL [Suspect]
     Active Substance: PROPRANOLOL HYDROCHLORIDE
     Indication: Off label use
  3. SPIRONOLACTONE [Suspect]
     Active Substance: SPIRONOLACTONE
     Indication: Myocardial ischaemia
     Dosage: UNK
     Route: 065
  4. CAPTOPRIL [Suspect]
     Active Substance: CAPTOPRIL
     Indication: Myocardial ischaemia
     Dosage: UNK
     Route: 065

REACTIONS (6)
  - Pericardial effusion [Recovered/Resolved]
  - C-reactive protein increased [Unknown]
  - Feeding disorder [Unknown]
  - Lethargy [Unknown]
  - Product use in unapproved indication [Unknown]
  - Off label use [Unknown]
